FAERS Safety Report 7064573-5 (Version None)
Quarter: 2010Q4

REPORT INFORMATION
  Report Type: 
  Country: None (occurrence: None)
  Receive Date: 20101027
  Receipt Date: 20101022
  Transmission Date: 20110411
  Serious: Yes (Death, Hospitalization, Other)
  Sender: FDA-Public Use
  Company Number: US-ASTRAZENECA-2010SE50383

PATIENT
  Age: 62 Year
  Sex: Male

DRUGS (2)
  1. SEROQUEL [Suspect]
     Indication: AGITATION
     Route: 042
  2. HALDOL [Concomitant]
     Indication: AGITATION
     Route: 042

REACTIONS (5)
  - CATARACT [None]
  - DEATH [None]
  - DRUG ADMINISTRATION ERROR [None]
  - LUNG INFILTRATION [None]
  - TRANSFUSION [None]
